FAERS Safety Report 17399405 (Version 1)
Quarter: 2020Q1

REPORT INFORMATION
  Report Type: Spontaneous
  Country: GB (occurrence: GB)
  Receive Date: 20200211
  Receipt Date: 20200211
  Transmission Date: 20200409
  Serious: Yes (Hospitalization)
  Sender: FDA-Public Use
  Company Number: GB-TEVA-2020-GB-1184170

PATIENT
  Age: 56 Year
  Sex: Female

DRUGS (7)
  1. DISULFIRAM. [Suspect]
     Active Substance: DISULFIRAM
     Indication: PROPHYLAXIS AGAINST ALCOHOLIC WITHDRAWAL SYNDROME
     Dosage: 200 MG
     Route: 048
     Dates: start: 201907, end: 202001
  2. NAPROXEN. [Concomitant]
     Active Substance: NAPROXEN
  3. CLARITHROMYCIN. [Concomitant]
     Active Substance: CLARITHROMYCIN
     Indication: RHINITIS
     Dosage: FOR SEVERAL DAYS
     Dates: start: 201912, end: 201912
  4. ACAMPROSATE [Concomitant]
     Active Substance: ACAMPROSATE
     Dosage: 1998 MG
  5. ZIMOVANE [Concomitant]
     Active Substance: ZOPICLONE
     Dosage: 7.5 MG
  6. COCODAMOL [Concomitant]
     Active Substance: ACETAMINOPHEN\CODEINE PHOSPHATE
  7. MIRTAZAPINE. [Concomitant]
     Active Substance: MIRTAZAPINE
     Dosage: 30 MG

REACTIONS (4)
  - Abdominal pain [Recovering/Resolving]
  - Vomiting [Recovering/Resolving]
  - Dyskinesia [Recovering/Resolving]
  - Nausea [Recovering/Resolving]

NARRATIVE: CASE EVENT DATE: 201909
